FAERS Safety Report 16850546 (Version 1)
Quarter: 2019Q3

REPORT INFORMATION
  Report Type: Spontaneous
  Country: US (occurrence: US)
  Receive Date: 20190925
  Receipt Date: 20190925
  Transmission Date: 20191005
  Serious: No
  Sender: FDA-Public Use
  Company Number: US-UPSHER-SMITH LABORATORIES, LLC-2019USL00121

PATIENT
  Sex: Female

DRUGS (2)
  1. BACLOFEN. [Suspect]
     Active Substance: BACLOFEN
     Dosage: 20 MG, 1X/DAY
     Dates: start: 201902, end: 20190212
  2. BACLOFEN. [Suspect]
     Active Substance: BACLOFEN
     Indication: BACK PAIN
     Dosage: UNK
     Dates: start: 201810, end: 201810

REACTIONS (15)
  - Asthenia [Unknown]
  - Dizziness [Recovering/Resolving]
  - Tremor [Recovered/Resolved]
  - Feeling abnormal [Recovering/Resolving]
  - Somnolence [Recovering/Resolving]
  - Memory impairment [Recovering/Resolving]
  - Disturbance in attention [Recovering/Resolving]
  - Decreased appetite [Unknown]
  - Visual impairment [Recovering/Resolving]
  - Balance disorder [Not Recovered/Not Resolved]
  - Dry mouth [Unknown]
  - Insomnia [Unknown]
  - Drug ineffective for unapproved indication [Recovered/Resolved]
  - Speech disorder [Recovering/Resolving]
  - Malaise [Unknown]

NARRATIVE: CASE EVENT DATE: 201810
